FAERS Safety Report 9007536 (Version 1)
Quarter: 2013Q1

REPORT INFORMATION
  Report Type: Spontaneous
  Country: FR (occurrence: FR)
  Receive Date: 20130111
  Receipt Date: 20130111
  Transmission Date: 20140127
  Serious: Yes (Life-Threatening, Hospitalization)
  Sender: FDA-Public Use
  Company Number: FR-ELI_LILLY_AND_COMPANY-FR201301002345

PATIENT
  Age: 60 Year
  Sex: Male

DRUGS (9)
  1. GEMZAR [Suspect]
     Indication: SQUAMOUS CELL CARCINOMA
     Dosage: 2400 MG, UNK
     Route: 042
     Dates: start: 20120711, end: 20120829
  2. CISPLATIN [Concomitant]
     Indication: SQUAMOUS CELL CARCINOMA
     Dosage: 140 MG, UNK
     Route: 042
     Dates: start: 20120711, end: 20120829
  3. ZOPHREN [Concomitant]
     Indication: PREMEDICATION
     Dosage: 8 MG, UNK
     Dates: start: 20120711, end: 20120829
  4. EMEND [Concomitant]
     Indication: PREMEDICATION
     Dosage: 80 MG, QD
     Dates: start: 20120711, end: 20120801
  5. SOLUMEDROL [Concomitant]
     Indication: PREMEDICATION
  6. LYRICA [Concomitant]
  7. CRESTOR [Concomitant]
  8. TRIATEC [Concomitant]
  9. PANTOPRAZOLE [Concomitant]

REACTIONS (6)
  - Septic shock [Recovering/Resolving]
  - Interstitial lung disease [Recovering/Resolving]
  - Pulmonary embolism [Unknown]
  - Inflammation [Unknown]
  - Asthenia [Unknown]
  - Decreased appetite [Unknown]
